FAERS Safety Report 20740754 (Version 1)
Quarter: 2022Q2

REPORT INFORMATION
  Report Type: Spontaneous
  Country: CH (occurrence: CH)
  Receive Date: 20220422
  Receipt Date: 20220422
  Transmission Date: 20220721
  Serious: Yes (Other)
  Sender: FDA-Public Use
  Company Number: None

PATIENT
  Age: 73 Year
  Sex: Male
  Weight: 55 kg

DRUGS (8)
  1. SULFAMETHOXAZOLE\TRIMETHOPRIM [Suspect]
     Active Substance: SULFAMETHOXAZOLE\TRIMETHOPRIM
     Indication: Acute myeloid leukaemia
     Dosage: 1DF,SULFAMETHOXAZOLE: 800MG; TRIMETHOPRIM: 160MG,3X/WEEK, MEPHA PHARMA AG
     Route: 048
     Dates: start: 202010
  2. SOTROVIMAB [Suspect]
     Active Substance: SOTROVIMAB
     Dosage: 1DF
     Route: 042
     Dates: start: 20220128
  3. PROGRAF [Concomitant]
     Active Substance: TACROLIMUS
  4. VALTREX [Concomitant]
     Active Substance: VALACYCLOVIR HYDROCHLORIDE
  5. LAMIVUDINE [Concomitant]
     Active Substance: LAMIVUDINE
  6. VITAMIN D3 [Concomitant]
     Active Substance: CHOLECALCIFEROL
  7. PANTOZOL [Concomitant]
     Active Substance: PANTOPRAZOLE SODIUM
  8. TAMSULOSIN HYDROCHLORIDE [Concomitant]
     Active Substance: TAMSULOSIN HYDROCHLORIDE

REACTIONS (1)
  - Drug eruption [Recovering/Resolving]

NARRATIVE: CASE EVENT DATE: 20220215
